FAERS Safety Report 16831592 (Version 1)
Quarter: 2019Q3

REPORT INFORMATION
  Report Type: Spontaneous
  Country: US (occurrence: US)
  Receive Date: 20190730
  Receipt Date: 20190730
  Transmission Date: 20191005
  Serious: Yes (Other)
  Sender: FDA-Public Use
  Company Number: None

PATIENT
  Sex: Female

DRUGS (2)
  1. CEFTRIAXONE SODIUM 2GM APOTEX [Suspect]
     Active Substance: CEFTRIAXONE SODIUM
     Indication: LYME DISEASE
     Route: 042
     Dates: start: 20190719
  2. DIPHEN [Concomitant]
     Active Substance: DIPHENHYDRAMINE HYDROCHLORIDE

REACTIONS (3)
  - Throat irritation [None]
  - Throat tightness [None]
  - Feeling abnormal [None]
